FAERS Safety Report 8988223 (Version 2)
Quarter: 2013Q2

REPORT INFORMATION
  Report Type: Report from Study
  Country: ES (occurrence: ES)
  Receive Date: 20121227
  Receipt Date: 20130423
  Transmission Date: 20140414
  Serious: Yes (Hospitalization)
  Sender: FDA-Public Use
  Company Number: ES-OTSUKA-EU-2012-10024

PATIENT
  Age: 80 Year
  Sex: Male

DRUGS (14)
  1. PLETAL [Suspect]
     Indication: INTERMITTENT CLAUDICATION
     Dosage: 200 MG MILLIGRAM(S), DAILY DOSE
     Route: 048
     Dates: start: 20110518, end: 20120125
  2. VOLTAREN [Suspect]
     Indication: CHEST PAIN
     Dosage: UNK, UNKNOWN
  3. SPIRIVA [Concomitant]
     Dosage: 18 MCG, DAILY DOSE
     Route: 065
     Dates: start: 20080430
  4. FLUTICASONE [Concomitant]
     Dosage: 1 MG MILLIGRAM(S), DAILY DOSE
     Route: 065
     Dates: start: 20080403
  5. SALMETEROL [Concomitant]
     Dosage: 100 MCG, DAILY DOSE
     Route: 065
     Dates: start: 20080430
  6. LANSOPRAZOLE [Concomitant]
     Dosage: 15 MG MILLIGRAM(S), DAILY DOSE
     Route: 065
     Dates: start: 20110201
  7. VERAPAMIL [Concomitant]
     Dosage: 120 MG MILLIGRAM(S), DAILY DOSE
     Route: 065
     Dates: start: 20110209
  8. CLOPIDOGREL [Concomitant]
     Dosage: 75 MG MILLIGRAM(S), DAILY DOSE
     Route: 065
     Dates: start: 20110209
  9. DUTASTERIDE [Concomitant]
     Dosage: 0.5 MG MILLIGRAM(S), DAILY DOSE
     Route: 065
     Dates: start: 20110211
  10. TAMSULOSIN [Concomitant]
     Dosage: 0.4 MG MILLIGRAM(S), DAILY DOSE
     Route: 065
     Dates: start: 20110211
  11. FUROSEMIDE [Concomitant]
  12. INDACATEROL [Concomitant]
  13. ACECLOFENAC [Concomitant]
  14. ORFIDAL [Concomitant]

REACTIONS (2)
  - Acute pulmonary oedema [Recovered/Resolved]
  - Atrial fibrillation [Not Recovered/Not Resolved]
